FAERS Safety Report 7085056-2 (Version None)
Quarter: 2010Q4

REPORT INFORMATION
  Report Type: 
  Country: None (occurrence: None)
  Receive Date: 20101105
  Receipt Date: 20101102
  Transmission Date: 20110411
  Serious: Yes (Death, Hospitalization)
  Sender: FDA-Public Use
  Company Number: US-BAYER-201020137NA

PATIENT
  Age: 75 Year
  Sex: Female
  Weight: 102 kg

DRUGS (6)
  1. SORAFENIB [Suspect]
     Indication: METASTATIC MALIGNANT MELANOMA
     Dosage: TOTAL DAILY DOSE: 400 MG  UNIT DOSE: 200 MG
     Route: 048
     Dates: start: 20091014, end: 20100124
  2. TEMSIROLIMUS [Suspect]
     Indication: METASTATIC MALIGNANT MELANOMA
     Dosage: AS USED: 25 MG
     Route: 042
     Dates: start: 20091014, end: 20100113
  3. AMLODIPINE [Concomitant]
  4. HYDROCHLOROTHIAZIDE [Concomitant]
  5. COZAAR [Concomitant]
  6. ASPIRIN [Concomitant]

REACTIONS (6)
  - DEHYDRATION [None]
  - LUNG NEOPLASM [None]
  - MENTAL STATUS CHANGES [None]
  - METASTASES TO LUNG [None]
  - PANCREATITIS [None]
  - RENAL FAILURE [None]
